FAERS Safety Report 6505457-8 (Version None)
Quarter: 2009Q4

REPORT INFORMATION
  Report Type: 
  Country: None (occurrence: None)
  Receive Date: 20091218
  Receipt Date: 20091211
  Transmission Date: 20100525
  Serious: Yes (Other)
  Sender: FDA-Public Use
  Company Number: US-BAYER-200942585NA

PATIENT
  Age: 34 Year
  Sex: Female
  Weight: 98 kg

DRUGS (3)
  1. MIRENA [Suspect]
     Indication: CONTRACEPTION
     Dosage: CONTINUOUS
     Route: 015
     Dates: start: 20080813, end: 20091207
  2. LEXAPRO [Concomitant]
  3. ABILIFY [Concomitant]

REACTIONS (2)
  - COMPLICATION OF DEVICE REMOVAL [None]
  - DEVICE BREAKAGE [None]
